FAERS Safety Report 9306045 (Version 2)
Quarter: 2014Q3

REPORT INFORMATION
  Report Type: Report from Study
  Country: MX (occurrence: MX)
  Receive Date: 20130523
  Receipt Date: 20140721
  Transmission Date: 20150326
  Serious: Yes (Other)
  Sender: FDA-Public Use
  Company Number: PHHY2013MX051643

PATIENT
  Age: 68 Year
  Sex: Female

DRUGS (2)
  1. CALTRATE [Concomitant]
     Active Substance: CALCIUM CARBONATE
     Indication: OSTEOPOROSIS
     Dosage: UNK UKN, UNK
  2. DIOVAN [Suspect]
     Active Substance: VALSARTAN
     Indication: HYPERTENSION
     Dosage: 3 DF (160MG) DAILY
     Route: 048
     Dates: start: 2011

REACTIONS (8)
  - Fall [Not Recovered/Not Resolved]
  - Accident [Not Recovered/Not Resolved]
  - Injury [Not Recovered/Not Resolved]
  - Vertigo [Not Recovered/Not Resolved]
  - Lower limb fracture [Not Recovered/Not Resolved]
  - Upper limb fracture [Not Recovered/Not Resolved]
  - Rib fracture [Not Recovered/Not Resolved]
  - Overdose [Not Recovered/Not Resolved]

NARRATIVE: CASE EVENT DATE: 2012
